FAERS Safety Report 6312615-4 (Version None)
Quarter: 2009Q3

REPORT INFORMATION
  Report Type: 
  Country: None (occurrence: None)
  Receive Date: 20090813
  Receipt Date: 20090806
  Transmission Date: 20100115
  Serious: Yes (Hospitalization)
  Sender: FDA-Public Use
  Company Number: 2008AL005832

PATIENT
  Age: 50 Year
  Sex: Male
  Weight: 92.5338 kg

DRUGS (6)
  1. DIGOXIN [Suspect]
     Dosage: DAILY, PO
     Route: 048
  2. HYDROCHLOROTHIAZIDE [Concomitant]
  3. LANOXIN [Concomitant]
  4. SPIRONOLACTONE [Concomitant]
  5. LABETALOL HCL [Concomitant]
  6. ASPIRIN [Concomitant]

REACTIONS (3)
  - MYOCARDIAL INFARCTION [None]
  - OEDEMA PERIPHERAL [None]
  - PALPITATIONS [None]
